FAERS Safety Report 10488718 (Version 3)
Quarter: 2014Q4

REPORT INFORMATION
  Report Type: Report from Study
  Country: US (occurrence: US)
  Receive Date: 20141002
  Receipt Date: 20141023
  Transmission Date: 20150528
  Serious: Yes (Other)
  Sender: FDA-Public Use
  Company Number: US-LEO PHARMA-229854

PATIENT
  Age: 77 Year
  Sex: Female

DRUGS (1)
  1. PICATO [Suspect]
     Active Substance: INGENOL MEBUTATE
     Indication: ACTINIC CHEILITIS
     Route: 061
     Dates: start: 20140919, end: 20140921

REACTIONS (9)
  - Lip discolouration [Recovered/Resolved]
  - Application site scab [Recovered/Resolved]
  - Application site swelling [Recovered/Resolved]
  - Asthenia [Recovered/Resolved]
  - Application site exfoliation [Recovered/Resolved]
  - Product use issue [Unknown]
  - Swollen tongue [Recovered/Resolved]
  - Nervousness [Recovered/Resolved]
  - Application site vesicles [Recovered/Resolved]

NARRATIVE: CASE EVENT DATE: 20140920
